FAERS Safety Report 15765251 (Version 3)
Quarter: 2019Q1

REPORT INFORMATION
  Report Type: Report from Study
  Country: US (occurrence: US)
  Receive Date: 20181227
  Receipt Date: 20190322
  Transmission Date: 20190417
  Serious: Yes (Hospitalization)
  Sender: FDA-Public Use
  Company Number: US-BIOGEN-2018BI00675331

PATIENT
  Sex: Female

DRUGS (1)
  1. TYSABRI [Suspect]
     Active Substance: NATALIZUMAB
     Indication: MULTIPLE SCLEROSIS
     Dosage: INFUSED FOR OVER 1 HOUR
     Route: 050

REACTIONS (4)
  - Oesophageal candidiasis [Not Recovered/Not Resolved]
  - Mediastinitis [Not Recovered/Not Resolved]
  - Fungaemia [Unknown]
  - Oesophageal perforation [Not Recovered/Not Resolved]
